FAERS Safety Report 7965277-4 (Version None)
Quarter: 2011Q4

REPORT INFORMATION
  Report Type: 
  Country: None (occurrence: None)
  Receive Date: 20111208
  Receipt Date: 20111128
  Transmission Date: 20120403
  Serious: Yes (Other)
  Sender: FDA-Public Use
  Company Number: US-BAYER-2011-041369

PATIENT
  Sex: Female
  Weight: 51.247 kg

DRUGS (7)
  1. OMEPRAZOLE [Concomitant]
     Dosage: 20 MG, UNK
     Route: 048
     Dates: start: 20081216, end: 20091005
  2. ACETAMINOPHEN [Concomitant]
  3. YASMIN [Suspect]
     Indication: CONTRACEPTION
     Dosage: UNK
     Route: 048
     Dates: start: 20081201, end: 20091201
  4. CHLORPHENIRAMINE W/PSEUDOEPHEDRINE [Concomitant]
     Dosage: UNK
     Route: 048
     Dates: start: 20090901
  5. YASMIN [Suspect]
     Indication: PREMENSTRUAL SYNDROME
  6. CEPHALEXIN [Concomitant]
     Dosage: 500 MG, UNK
     Dates: start: 20090901
  7. MULTI-VITAMIN [Concomitant]

REACTIONS (6)
  - GALLBLADDER INJURY [None]
  - PAIN [None]
  - ANXIETY [None]
  - EMOTIONAL DISTRESS [None]
  - INJURY [None]
  - CHOLELITHIASIS [None]
